FAERS Safety Report 14852257 (Version 3)
Quarter: 2018Q4

REPORT INFORMATION
  Report Type: Spontaneous
  Country: US (occurrence: US)
  Receive Date: 20180507
  Receipt Date: 20181121
  Transmission Date: 20190204
  Serious: No
  Sender: FDA-Public Use
  Company Number: US-PFIZER INC-2017526042

PATIENT
  Age: 61 Year
  Sex: Female

DRUGS (12)
  1. DOCETAXEL. [Suspect]
     Active Substance: DOCETAXEL
     Dosage: 161 MG, CYCLIC EVERY THREE WEEKS (4 CYCLES)
     Dates: start: 20131227, end: 20131227
  2. BUPROPION. [Concomitant]
     Active Substance: BUPROPION
     Dosage: UNK
     Dates: start: 2011
  3. CYTOXAN [Concomitant]
     Active Substance: CYCLOPHOSPHAMIDE
     Indication: BREAST CANCER FEMALE
     Dosage: 1284 MG, UNK
     Dates: start: 20130913, end: 20131115
  4. DOCETAXEL. [Suspect]
     Active Substance: DOCETAXEL
     Dosage: 214 MG, CYCLIC EVERY THREE WEEKS (4 CYCLES)
     Dates: start: 20140120, end: 20140120
  5. DOCETAXEL. [Suspect]
     Active Substance: DOCETAXEL
     Indication: BREAST CANCER FEMALE
     Dosage: 214 MG, CYCLIC EVERY THREE WEEKS (4 CYCLES)
     Dates: start: 20131206, end: 20131206
  6. LISINOPRIL. [Concomitant]
     Active Substance: LISINOPRIL
     Dosage: UNK
     Dates: start: 2005
  7. SERTRALINE [Concomitant]
     Active Substance: SERTRALINE HYDROCHLORIDE
     Dosage: UNK
     Dates: start: 1996
  8. DOCETAXEL. [Suspect]
     Active Substance: DOCETAXEL
     Dosage: 161 MG, CYCLIC EVERY THREE WEEKS (4 CYCLES)
     Dates: start: 20140210, end: 20140210
  9. ADRIAMYCIN [Concomitant]
     Active Substance: DOXORUBICIN HYDROCHLORIDE
     Indication: BREAST CANCER FEMALE
     Dosage: 64 MG, UNK
     Dates: start: 20130913, end: 20131115
  10. NEOSAR [Concomitant]
     Active Substance: CYCLOPHOSPHAMIDE
     Indication: CHEMOTHERAPY
     Dosage: UNK
  11. DOXIL [Concomitant]
     Active Substance: DOXORUBICIN HYDROCHLORIDE
     Indication: CHEMOTHERAPY
  12. LETROZOLE. [Concomitant]
     Active Substance: LETROZOLE
     Indication: HORMONE THERAPY
     Dosage: UNK
     Dates: start: 201405

REACTIONS (6)
  - Hair disorder [Unknown]
  - Frustration tolerance decreased [Unknown]
  - Depressed mood [Unknown]
  - Hair colour changes [Unknown]
  - Hair texture abnormal [Unknown]
  - Alopecia [Not Recovered/Not Resolved]

NARRATIVE: CASE EVENT DATE: 20140810
